FAERS Safety Report 11398018 (Version 4)
Quarter: 2015Q3

REPORT INFORMATION
  Report Type: Report from Study
  Country: US (occurrence: US)
  Receive Date: 20150820
  Receipt Date: 20150914
  Transmission Date: 20151125
  Serious: No
  Sender: FDA-Public Use
  Company Number: US-AMGEN-USASP2015082076

PATIENT
  Age: 39 Year
  Sex: Female

DRUGS (4)
  1. B12                                /00056201/ [Concomitant]
     Dosage: UNK
  2. ENBREL [Suspect]
     Active Substance: ETANERCEPT
     Indication: RHEUMATOID ARTHRITIS
     Dosage: 50 MG, QWK
     Route: 065
     Dates: start: 20150720
  3. NIACIN. [Concomitant]
     Active Substance: NIACIN
     Dosage: UNK
  4. ENBREL [Suspect]
     Active Substance: ETANERCEPT
     Indication: OSTEOARTHRITIS

REACTIONS (18)
  - Fatigue [Not Recovered/Not Resolved]
  - Arthralgia [Unknown]
  - Injection site bruising [Unknown]
  - Vitamin B12 decreased [Unknown]
  - Injection site extravasation [Unknown]
  - Joint crepitation [Unknown]
  - Dysmenorrhoea [Unknown]
  - Feeling abnormal [Recovered/Resolved]
  - Pain in extremity [Unknown]
  - Laceration [Unknown]
  - Fibromyalgia [Unknown]
  - Device issue [Unknown]
  - Headache [Not Recovered/Not Resolved]
  - Coagulopathy [Unknown]
  - Injection site pain [Unknown]
  - Arthropathy [Unknown]
  - Injection site haemorrhage [Unknown]
  - Injection site discolouration [Not Recovered/Not Resolved]

NARRATIVE: CASE EVENT DATE: 2015
